FAERS Safety Report 17658501 (Version 1)
Quarter: 2020Q2

REPORT INFORMATION
  Report Type: Spontaneous
  Country: US (occurrence: US)
  Receive Date: 20200412
  Receipt Date: 20200412
  Transmission Date: 20200713
  Serious: No
  Sender: FDA-Public Use
  Company Number: US-SA-2020SA090315

PATIENT
  Sex: Female
  Weight: 90.72 kg

DRUGS (4)
  1. VITAMIN D NOS [Concomitant]
     Active Substance: VITAMIN D NOS
  2. AUBAGIO [Suspect]
     Active Substance: TERIFLUNOMIDE
     Indication: MULTIPLE SCLEROSIS
     Dosage: 14 MG, QD
     Route: 048
     Dates: start: 20090601
  3. IBUPROFEN. [Concomitant]
     Active Substance: IBUPROFEN
  4. LEXAPRO [Concomitant]
     Active Substance: ESCITALOPRAM OXALATE

REACTIONS (2)
  - Alopecia [Unknown]
  - Depressed mood [Unknown]
